FAERS Safety Report 7821093-5 (Version None)
Quarter: 2011Q4

REPORT INFORMATION
  Report Type: 
  Country: None (occurrence: None)
  Receive Date: 20111018
  Receipt Date: 20111012
  Transmission Date: 20120403
  Serious: Yes (Hospitalization)
  Sender: FDA-Public Use
  Company Number: US-PFIZER INC-2011080430

PATIENT
  Sex: Male

DRUGS (7)
  1. TESSALON [Concomitant]
     Dosage: UNK
     Dates: start: 20110218
  2. ATENOLOL [Concomitant]
     Dosage: UNK
     Dates: start: 20110318
  3. MDX-1106 [Concomitant]
     Indication: MALIGNANT MELANOMA
     Dosage: 27 MG, UNK
     Route: 042
     Dates: start: 20100415, end: 20101230
  4. LORAZEPAM [Concomitant]
     Dosage: UNK
     Dates: start: 20110218, end: 20110317
  5. OMEPRAZOLE [Concomitant]
     Dosage: UNK
     Dates: start: 20110318
  6. IBUPROFEN (ADVIL) [Suspect]
     Indication: TUMOUR ASSOCIATED FEVER
     Dosage: 1 DOSAGE FORM 3/1 DAY
     Route: 048
     Dates: start: 20110303
  7. IPILIMUMAB [Concomitant]
     Indication: MALIGNANT MELANOMA
     Dosage: 268 MG, UNK
     Route: 042
     Dates: start: 20100415, end: 20101230

REACTIONS (2)
  - BLOOD CREATININE INCREASED [None]
  - NEPHRITIS AUTOIMMUNE [None]
